FAERS Safety Report 6400313-8 (Version None)
Quarter: 2009Q4

REPORT INFORMATION
  Report Type: 
  Country: None (occurrence: None)
  Receive Date: 20091014
  Receipt Date: 20090930
  Transmission Date: 20100525
  Serious: Yes (Other)
  Sender: FDA-Public Use
  Company Number: CA-GENENTECH-287000

PATIENT
  Sex: Male
  Weight: 38.549 kg

DRUGS (2)
  1. XOLAIR [Suspect]
     Indication: ASTHMA
     Dosage: 375 MG, 2/WEEK
     Route: 058
     Dates: start: 20080930
  2. XOLAIR [Suspect]
     Dosage: 375 MG, 2/WEEK
     Route: 058
     Dates: start: 20090902

REACTIONS (3)
  - BLOOD PRESSURE DECREASED [None]
  - BODY TEMPERATURE DECREASED [None]
  - HYPERSENSITIVITY [None]
